FAERS Safety Report 5296866-6 (Version None)
Quarter: 2007Q2

REPORT INFORMATION
  Report Type: 
  Country: None (occurrence: None)
  Receive Date: 20070413
  Receipt Date: 20070405
  Transmission Date: 20071010
  Serious: Yes (Other)
  Sender: FDA-Public Use
  Company Number: FR-PFIZER INC-2007028322

PATIENT
  Age: 77 Year
  Sex: Male

DRUGS (2)
  1. ZOXAN LP [Suspect]
     Indication: BENIGN PROSTATIC HYPERPLASIA
  2. CRESTOR [Concomitant]
     Indication: HYPERCHOLESTEROLAEMIA

REACTIONS (2)
  - FAECES DISCOLOURED [None]
  - HAEMATOCHEZIA [None]
